FAERS Safety Report 13059585 (Version 5)
Quarter: 2020Q1

REPORT INFORMATION
  Report Type: Spontaneous
  Country: FR (occurrence: FR)
  Receive Date: 20161223
  Receipt Date: 20200203
  Transmission Date: 20200409
  Serious: Yes (Hospitalization)
  Sender: FDA-Public Use
  Company Number: FR-LEO PHARMA-245247

PATIENT
  Age: 87 Year
  Sex: Male

DRUGS (4)
  1. PICATO [Suspect]
     Active Substance: INGENOL MEBUTATE
     Indication: ACTINIC KERATOSIS
     Route: 061
     Dates: start: 20160922, end: 20160924
  2. LEVOTHYROXINE (LEVOTHYROX) [Concomitant]
     Indication: PRODUCT USED FOR UNKNOWN INDICATION
  3. AMIODARONE (CORDARONE) [Concomitant]
     Indication: ATRIAL FIBRILLATION
  4. FLUINDIONE (PREVISCAN) [Concomitant]
     Active Substance: FLUINDIONE
     Indication: ATRIAL FIBRILLATION

REACTIONS (1)
  - Squamous cell carcinoma [Recovered/Resolved with Sequelae]

NARRATIVE: CASE EVENT DATE: 201611
